FAERS Safety Report 6041664-9 (Version None)
Quarter: 2009Q1

REPORT INFORMATION
  Report Type: 
  Country: None (occurrence: None)
  Receive Date: 20090116
  Receipt Date: 20081030
  Transmission Date: 20090719
  Serious: No
  Sender: FDA-Public Use
  Company Number: US-BRISTOL-MYERS SQUIBB COMPANY-14390835

PATIENT
  Age: 38 Year
  Sex: Female

DRUGS (5)
  1. ABILIFY [Suspect]
     Indication: BIPOLAR II DISORDER
     Dosage: STARTED AT 2MG/D, THEN INCREASED TO 5MG/D, THEN DECREASED TO 2.5MG/D, FINALLY DISCONTINUED
  2. ABILIFY [Suspect]
     Indication: POST-TRAUMATIC STRESS DISORDER
     Dosage: STARTED AT 2MG/D, THEN INCREASED TO 5MG/D, THEN DECREASED TO 2.5MG/D, FINALLY DISCONTINUED
  3. LITHIUM [Concomitant]
  4. DIAZEPAM [Concomitant]
  5. LAMICTAL [Concomitant]

REACTIONS (3)
  - BLEPHAROSPASM [None]
  - TONGUE DISORDER [None]
  - TREMOR [None]
